FAERS Safety Report 7216379 (Version 2)
Quarter: 2012Q4

REPORT INFORMATION
  Report Type: 
  Country: US (occurrence: US)
  Receive Date: 20091214
  Receipt Date: 20121218
  Transmission Date: 20130627
  Serious: No
  Sender: FDA-Public Use
  Company Number: US-BRISTOL-MYERS SQUIBB COMPANY-14708945

PATIENT
  Age: 80 Year
  Sex: Male

DRUGS (1)
  1. ABILIFY [Suspect]
     Indication: DEMENTIA ALZHEIMER^S TYPE
     Dosage: Decreased from 5 mg

REACTIONS (2)
  - Drug ineffective [Unknown]
  - Memory impairment [Unknown]
